FAERS Safety Report 9002702 (Version 1)
Quarter: 2013Q1

REPORT INFORMATION
  Report Type: Spontaneous
  Country: US (occurrence: US)
  Receive Date: 20130107
  Receipt Date: 20130107
  Transmission Date: 20140127
  Serious: No
  Sender: FDA-Public Use
  Company Number: US-GLAXOSMITHKLINE-A0977037A

PATIENT
  Age: 50 Year
  Sex: Female
  Weight: 54.03 kg

DRUGS (12)
  1. BENLYSTA [Suspect]
     Indication: SYSTEMIC LUPUS ERYTHEMATOSUS
     Dosage: 500MG CYCLIC
     Route: 042
     Dates: start: 20120222
  2. NEURONTIN [Concomitant]
     Dosage: 300MG PER DAY
  3. PREDNISONE [Concomitant]
     Dosage: 5MG PER DAY
  4. KLONOPIN [Concomitant]
     Dosage: 2MG PER DAY
  5. PLAQUENIL [Concomitant]
  6. PLAQUENIL [Concomitant]
  7. PRILOSEC [Concomitant]
     Dosage: 20MG PER DAY
  8. EVOXAC [Concomitant]
     Dosage: 30MG PER DAY
  9. METHOTREXATE [Concomitant]
  10. FOLIC ACID [Concomitant]
     Dosage: 1G PER DAY
  11. SAVELLA [Concomitant]
     Dosage: 15MG PER DAY
  12. PEPTO-BISMOL [Concomitant]

REACTIONS (7)
  - Confusional state [Recovered/Resolved]
  - Memory impairment [Recovered/Resolved]
  - Flatulence [Recovered/Resolved]
  - Rhinorrhoea [Recovered/Resolved]
  - Diarrhoea [Recovered/Resolved]
  - Fibromyalgia [Unknown]
  - Fatigue [Unknown]
